FAERS Safety Report 8244621 (Version 2)
Quarter: 2012Q4

REPORT INFORMATION
  Report Type: 
  Country: US (occurrence: US)
  Receive Date: 20111115
  Receipt Date: 20120920
  Transmission Date: 20130627
  Serious: Yes (Other)
  Sender: FDA-Public Use
  Company Number: US-US-EMD SERONO, INC.-230564K08USA

PATIENT
  Age: 47 None
  Sex: Female

DRUGS (6)
  1. REBIF [Suspect]
     Indication: MULTIPLE SCLEROSIS
     Route: 058
     Dates: start: 20060914
  2. OTHER UNSPECIFIED MEDICATIONS [Concomitant]
     Indication: PRODUCT USED FOR UNKNOWN INDICATION
  3. OPANA ER [Concomitant]
     Indication: PAIN
  4. NORCO [Concomitant]
     Indication: PAIN
  5. LEXAPRO [Concomitant]
     Indication: DEPRESSION
  6. KLONOPIN [Concomitant]
     Indication: DEPRESSION

REACTIONS (5)
  - Pancreatitis [Not Recovered/Not Resolved]
  - Pancreas divisum [Not Recovered/Not Resolved]
  - Pancreatic cyst [Not Recovered/Not Resolved]
  - Malaise [Not Recovered/Not Resolved]
  - Injection site pain [Not Recovered/Not Resolved]
